FAERS Safety Report 5963418-1 (Version None)
Quarter: 2008Q4

REPORT INFORMATION
  Report Type: 
  Country: None (occurrence: None)
  Receive Date: 20081121
  Receipt Date: 20081121
  Transmission Date: 20090506
  Serious: No
  Sender: FDA-Public Use
  Company Number: None

PATIENT
  Sex: Male
  Weight: 43.9 kg

DRUGS (8)
  1. LORAZEPAM [Suspect]
     Indication: ANXIETY
     Dosage: 1MG IV ONCE
     Route: 042
     Dates: start: 20080812
  2. LANSOPRAZOLE [Concomitant]
  3. RISPERIDONE [Concomitant]
  4. TOLTERODINE LA [Concomitant]
  5. BACLOFEN [Concomitant]
  6. NAFCILLIN SODIUM [Concomitant]
  7. COLACE [Concomitant]
  8. ARTIFICIAL TEARS [Concomitant]

REACTIONS (1)
  - LOSS OF CONSCIOUSNESS [None]
